FAERS Safety Report 9099836 (Version 1)
Quarter: 2013Q1

REPORT INFORMATION
  Report Type: Spontaneous
  Country: FR (occurrence: FR)
  Receive Date: 20130214
  Receipt Date: 20130214
  Transmission Date: 20140127
  Serious: Yes (Hospitalization)
  Sender: FDA-Public Use
  Company Number: FR-PFIZER INC-2013052102

PATIENT
  Age: 63 Year
  Sex: Female

DRUGS (17)
  1. RELPAX [Suspect]
     Indication: MIGRAINE
     Dosage: UNK
     Route: 048
     Dates: start: 200401, end: 200801
  2. DEXFENFLURAMINE [Suspect]
     Indication: OBESITY
     Route: 048
  3. OXYMETAZOLINE [Suspect]
     Indication: NASOPHARYNGITIS
     Route: 045
  4. RHINOFLUIMUCIL [Suspect]
     Indication: NASOPHARYNGITIS
     Dosage: UNK
     Route: 045
     Dates: start: 200403
  5. METOCLOPRAMIDE [Suspect]
     Indication: MIGRAINE
     Dosage: UNK
     Route: 048
     Dates: start: 200304, end: 200308
  6. TERCIAN [Concomitant]
     Dosage: 0-0-1/2
     Dates: start: 201205, end: 201212
  7. LEVOTHYROX [Concomitant]
     Dosage: 50 UG, UNK
     Dates: start: 200703
  8. LEVOTHYROX [Concomitant]
     Dosage: 75 UG, UNK
  9. GLUCOPHAGE [Concomitant]
     Dosage: 500 MG, UNK
     Dates: start: 1994
  10. GLUCOPHAGE [Concomitant]
     Dosage: 1000 MG, UNK
     Dates: start: 1994
  11. LEXOMIL [Concomitant]
     Dosage: 1.25 MG, 3X/DAY
     Dates: start: 200302, end: 201212
  12. STABLON [Concomitant]
     Dosage: 12.5 MG, UNK
     Dates: start: 200801, end: 201212
  13. ANAFRANIL [Concomitant]
     Dosage: 0-0-1
     Dates: start: 200806, end: 201212
  14. PROPOFAN [Concomitant]
     Dosage: 2 DF THRICE DAILY AS NEEDED
     Dates: start: 201002
  15. TAREG [Concomitant]
     Dosage: UNK
  16. ONGLYZA [Concomitant]
     Dosage: UNK
  17. AMAREL [Concomitant]
     Dosage: UNK

REACTIONS (2)
  - Pulmonary arterial hypertension [Not Recovered/Not Resolved]
  - Venoocclusive disease [Not Recovered/Not Resolved]
